FAERS Safety Report 7064831-4 (Version None)
Quarter: 2010Q4

REPORT INFORMATION
  Report Type: 
  Country: None (occurrence: None)
  Receive Date: 20101027
  Receipt Date: 19880321
  Transmission Date: 20110411
  Serious: Yes (Death, Life-Threatening)
  Sender: FDA-Public Use
  Company Number: US-ROCHE-880200380001

PATIENT
  Age: 68 Year
  Sex: Male

DRUGS (2)
  1. VERSED [Suspect]
     Route: 042
     Dates: start: 19871224, end: 19871224
  2. MORPHINE [Concomitant]
     Route: 042
     Dates: start: 19871224, end: 19871224

REACTIONS (3)
  - KIDNEY INFECTION [None]
  - RENAL IMPAIRMENT [None]
  - RESPIRATORY ARREST [None]
